FAERS Safety Report 6607261-9 (Version None)
Quarter: 2010Q1

REPORT INFORMATION
  Report Type: 
  Country: None (occurrence: None)
  Receive Date: 20100228
  Receipt Date: 20100211
  Transmission Date: 20100710
  Serious: No
  Sender: FDA-Public Use
  Company Number: US-JNJFOC-20091006377

PATIENT
  Sex: Male
  Weight: 108.86 kg

DRUGS (12)
  1. DURAGESIC-100 [Suspect]
     Indication: MUSCULOSKELETAL PAIN
     Route: 062
     Dates: start: 20091012
  2. DURAGESIC-100 [Suspect]
     Route: 062
     Dates: start: 20091012
  3. DURAGESIC-100 [Suspect]
     Indication: PAIN IN EXTREMITY
     Route: 062
     Dates: start: 20091012
  4. DURAGESIC-100 [Suspect]
     Route: 062
     Dates: start: 20091012
  5. DURAGESIC-100 [Suspect]
     Indication: PAIN
     Route: 062
     Dates: start: 20091012
  6. DURAGESIC-100 [Suspect]
     Route: 062
     Dates: start: 20091012
  7. DURAGESIC-100 [Suspect]
     Route: 062
  8. DURAGESIC-100 [Suspect]
     Route: 062
  9. VISTARIL [Concomitant]
     Indication: MENTAL DISORDER
     Route: 048
  10. DIOVAN [Concomitant]
     Indication: HYPERTENSION
     Route: 048
  11. TRAZEC [Concomitant]
  12. UNKNOWN MEDICATION [Concomitant]

REACTIONS (2)
  - ABDOMINAL DISCOMFORT [None]
  - WRONG TECHNIQUE IN DRUG USAGE PROCESS [None]
